FAERS Safety Report 7288451-1 (Version None)
Quarter: 2011Q1

REPORT INFORMATION
  Report Type: 
  Country: None (occurrence: None)
  Receive Date: 20110211
  Receipt Date: 20110203
  Transmission Date: 20110831
  Serious: Yes (Hospitalization)
  Sender: FDA-Public Use
  Company Number: B0670367A

PATIENT
  Sex: Male
  Weight: 78.5 kg

DRUGS (1)
  1. PAZOPANIB [Suspect]
     Indication: SARCOMA
     Dosage: 800MG PER DAY
     Route: 048
     Dates: start: 20100125, end: 20100804

REACTIONS (3)
  - FATIGUE [None]
  - INTESTINAL OBSTRUCTION [None]
  - ANAEMIA [None]
